FAERS Safety Report 10332062 (Version 2)
Quarter: 2014Q4

REPORT INFORMATION
  Report Type: Spontaneous
  Country: US (occurrence: US)
  Receive Date: 20140722
  Receipt Date: 20141219
  Transmission Date: 20150528
  Serious: Yes (Hospitalization, Other)
  Sender: FDA-Public Use
  Company Number: US-GILEAD-2014-0109299

PATIENT
  Age: 19 Year
  Sex: Male

DRUGS (3)
  1. ADCIRCA [Concomitant]
     Active Substance: TADALAFIL
  2. LETAIRIS [Suspect]
     Active Substance: AMBRISENTAN
     Indication: PULMONARY HYPERTENSION
     Dosage: 5 MG, QD
     Route: 065
     Dates: start: 20130328
  3. LETAIRIS [Suspect]
     Active Substance: AMBRISENTAN
     Indication: HEART DISEASE CONGENITAL

REACTIONS (8)
  - Confusional state [Unknown]
  - Haemoptysis [Unknown]
  - Memory impairment [Unknown]
  - Epistaxis [Unknown]
  - Pneumonia [Unknown]
  - Syncope [Unknown]
  - Respiratory failure [Unknown]
  - Oedema peripheral [Unknown]
